FAERS Safety Report 24392188 (Version 1)
Quarter: 2024Q4

REPORT INFORMATION
  Report Type: Spontaneous
  Country: US (occurrence: None)
  Receive Date: 20241002
  Receipt Date: 20241002
  Transmission Date: 20250114
  Serious: Yes (Hospitalization)
  Sender: Public
  Company Number: None

PATIENT
  Age: 41 Year
  Sex: Female
  Weight: 66.6 kg

DRUGS (1)
  1. ZEPBOUND [Suspect]
     Active Substance: TIRZEPATIDE
     Indication: Weight decreased
     Dates: start: 20240101, end: 20240826

REACTIONS (5)
  - Diarrhoea [None]
  - Anal abscess [None]
  - Secretion discharge [None]
  - Dyschezia [None]
  - Anal fistula [None]

NARRATIVE: CASE EVENT DATE: 20240826
